FAERS Safety Report 7321190-7 (Version None)
Quarter: 2011Q1

REPORT INFORMATION
  Report Type: 
  Country: None (occurrence: None)
  Receive Date: 20110228
  Receipt Date: 20110220
  Transmission Date: 20110831
  Serious: Yes (Other)
  Sender: FDA-Public Use
  Company Number: US-PFIZER INC-2011033471

PATIENT
  Sex: Female
  Weight: 73 kg

DRUGS (22)
  1. CLARITIN [Concomitant]
     Indication: SEASONAL ALLERGY
     Dosage: 10 MG, 1X/DAY
  2. CALCIUM [Concomitant]
     Indication: OSTEOPOROSIS
     Dosage: ONCE A WEEK
  3. ZOLOFT [Concomitant]
     Indication: OBSESSIVE-COMPULSIVE DISORDER
  4. SIMVASTATIN [Concomitant]
     Indication: BLOOD CHOLESTEROL INCREASED
     Dosage: 40 MG, 1X/DAY
  5. LEVOTHYROXINE [Concomitant]
     Indication: HYPERTHYROIDISM
     Dosage: 75 UG, 1X/DAY
     Route: 048
  6. ZOLOFT [Concomitant]
     Indication: PANIC ATTACK
  7. ACETAMINOPHEN [Concomitant]
     Indication: ARTHRITIS
     Dosage: 1000 MG, 2X/DAY
     Route: 048
  8. ZOLOFT [Concomitant]
     Indication: ANXIETY
     Dosage: 100 MG, 2X/DAY
  9. VITAMIN E [Concomitant]
     Dosage: 400 IU, 1X/DAY
  10. CHANTIX [Suspect]
     Indication: SMOKING CESSATION THERAPY
     Dosage: 0.5 MG, 1X/DAY
     Route: 048
     Dates: start: 20110129, end: 20110201
  11. FLOVENT [Concomitant]
     Indication: CHRONIC OBSTRUCTIVE PULMONARY DISEASE
     Dosage: 110 UG, 2X/DAY
     Route: 055
  12. CHANTIX [Suspect]
     Dosage: 1 MG, 2X/DAY
     Route: 048
     Dates: start: 20110201, end: 20110217
  13. VITAMIN A [Concomitant]
     Dosage: 8000 IU, 1X/DAY
  14. GARLIC [Concomitant]
     Dosage: 1000 MG, 1X/DAY
  15. ACETAMINOPHEN [Concomitant]
  16. BACLOFEN [Concomitant]
     Indication: BACK PAIN
     Dosage: 10 MG, 2X/DAY
  17. VERAPAMIL [Concomitant]
     Indication: HYPERTENSION
     Dosage: 240 MG, 1X/DAY
  18. XANAX [Concomitant]
     Indication: ANXIETY
     Dosage: 0.5 MG, AS NEEDED
     Dates: end: 20101001
  19. FLOVENT [Concomitant]
     Indication: SEASONAL ALLERGY
  20. MELOXICAM [Concomitant]
     Indication: PAIN
     Dosage: 7.5 MG, 1X/DAY
     Route: 048
  21. ALENDRONATE SODIUM [Concomitant]
     Indication: OSTEOPOROSIS
     Dosage: 70 MG, WEEKLY
  22. KLOR-CON [Concomitant]
     Dosage: 20 UG, 1X/DAY

REACTIONS (3)
  - PALPITATIONS [None]
  - CHEST PAIN [None]
  - CONFUSIONAL STATE [None]
